FAERS Safety Report 10213342 (Version 2)
Quarter: 2014Q2

REPORT INFORMATION
  Report Type: Spontaneous
  Country: IT (occurrence: IT)
  Receive Date: 20140603
  Receipt Date: 20140619
  Transmission Date: 20141212
  Serious: Yes (Other)
  Sender: FDA-Public Use
  Company Number: IT-JNJFOC-20140515696

PATIENT
  Age: 42 Year
  Sex: Male
  Weight: 75 kg

DRUGS (8)
  1. FENTANYL TRANSDERMAL SYSTEM [Suspect]
     Indication: CANCER PAIN
     Route: 062
     Dates: start: 20140424, end: 20140514
  2. FENTANYL TRANSDERMAL SYSTEM [Suspect]
     Indication: CANCER PAIN
     Route: 062
     Dates: start: 20140424, end: 20140514
  3. MORPHINE [Interacting]
     Indication: CANCER PAIN
     Route: 048
     Dates: start: 20140424, end: 20140514
  4. FENTANYL [Interacting]
     Indication: CANCER PAIN
     Route: 048
     Dates: start: 20140424, end: 20140514
  5. PREGABALIN [Concomitant]
     Indication: NEURALGIA
     Route: 048
     Dates: start: 20140331, end: 20140514
  6. ALPHA LIPOIC ACID [Concomitant]
     Indication: PRODUCT USED FOR UNKNOWN INDICATION
  7. ZOLEDRONIC ACID [Concomitant]
     Route: 065
     Dates: start: 20131121
  8. PALEXIA [Concomitant]
     Indication: NEURALGIA
     Route: 048
     Dates: start: 20140424, end: 20140514

REACTIONS (3)
  - Dehydration [Recovering/Resolving]
  - Drug interaction [Unknown]
  - Diarrhoea [Recovering/Resolving]
